FAERS Safety Report 9831832 (Version 2)
Quarter: 2014Q2

REPORT INFORMATION
  Report Type: Spontaneous
  Country: CA (occurrence: CA)
  Receive Date: 20140121
  Receipt Date: 20140423
  Transmission Date: 20141212
  Serious: Yes (Other)
  Sender: FDA-Public Use
  Company Number: CA-ABBVIE-14P-028-1191511-00

PATIENT
  Sex: Male
  Weight: 90.8 kg

DRUGS (2)
  1. HUMIRA [Suspect]
     Indication: CROHN^S DISEASE
     Dates: start: 2009
  2. PURINETHOL [Suspect]
     Indication: CROHN^S DISEASE
     Route: 048
     Dates: start: 2008

REACTIONS (1)
  - Extranodal marginal zone B-cell lymphoma (MALT type) [Unknown]
